FAERS Safety Report 22964961 (Version 2)
Quarter: 2025Q3

REPORT INFORMATION
  Report Type: Spontaneous
  Country: US (occurrence: US)
  Receive Date: 20230921
  Receipt Date: 20250829
  Transmission Date: 20251021
  Serious: No
  Sender: ABBVIE
  Company Number: US-ABBVIE-5416531

PATIENT
  Sex: Female

DRUGS (1)
  1. IMBRUVICA [Suspect]
     Active Substance: IBRUTINIB
     Indication: Chronic lymphocytic leukaemia
     Dosage: TAKEN WITH A GLASS OF WATER
     Route: 048

REACTIONS (4)
  - Back pain [Unknown]
  - Pain in extremity [Unknown]
  - Neuralgia [Unknown]
  - Cataract [Unknown]
